FAERS Safety Report 4318822-4 (Version None)
Quarter: 2004Q1

REPORT INFORMATION
  Report Type: 
  Country: None (occurrence: None)
  Receive Date: 20040318
  Receipt Date: 20040212
  Transmission Date: 20041129
  Serious: Yes (Hospitalization)
  Sender: FDA-Public Use
  Company Number: WAES 0402USA01126

PATIENT
  Age: 65 Year
  Sex: Female
  Weight: 54 kg

DRUGS (6)
  1. CLOTIAZEPAM [Concomitant]
     Indication: NEUROSIS
     Dates: start: 19980101, end: 20031130
  2. PEPCID [Concomitant]
     Route: 048
     Dates: end: 20031130
  3. FLUVASTATIN SODIUM [Concomitant]
     Indication: HYPERLIPIDAEMIA
     Dates: start: 19980101, end: 20031125
  4. COZAAR [Suspect]
     Indication: HYPERTENSION
     Route: 048
     Dates: start: 19980101, end: 20031130
  5. COZAAR [Suspect]
     Route: 048
     Dates: start: 20040107, end: 20040129
  6. PRAVASTATIN SODIUM [Suspect]
     Indication: HYPERLIPIDAEMIA
     Route: 048
     Dates: start: 20031126, end: 20031130

REACTIONS (6)
  - ALANINE AMINOTRANSFERASE INCREASED [None]
  - ASPARTATE AMINOTRANSFERASE INCREASED [None]
  - BLOOD PRESSURE INCREASED [None]
  - FEELING ABNORMAL [None]
  - HEPATIC FUNCTION ABNORMAL [None]
  - JAUNDICE [None]
